FAERS Safety Report 24565838 (Version 1)
Quarter: 2024Q4

REPORT INFORMATION
  Report Type: Spontaneous
  Country: ES (occurrence: ES)
  Receive Date: 20241030
  Receipt Date: 20241030
  Transmission Date: 20250115
  Serious: Yes (Other)
  Sender: TEVA
  Company Number: None

PATIENT
  Age: 72 Year
  Sex: Female

DRUGS (4)
  1. AMOXICILLIN\CLAVULANIC ACID [Suspect]
     Active Substance: AMOXICILLIN\CLAVULANIC ACID
     Indication: Cystitis
     Dosage: TIME INTERVAL: TOTAL: UNKNOWN DOSAGE: 1 SACHET (SINGLE DOSE); AMOXICILLIN + CLAVULANIC ACID
     Route: 048
     Dates: start: 20240325, end: 20240325
  2. CALCIFEDIOL [Concomitant]
     Active Substance: CALCIFEDIOL
     Indication: Product used for unknown indication
     Dosage: HYDROFEROL 10 DRINKABLE AMPOULES OF 1.5 ML
     Route: 048
     Dates: start: 20191011
  3. LANSOPRAZOLE [Concomitant]
     Active Substance: LANSOPRAZOLE
     Indication: Product used for unknown indication
     Dosage: LANSOPRAZOLE FLAS QUALIGEN 28 TABLETS
     Route: 048
     Dates: start: 20220207
  4. ENALAPRIL [Concomitant]
     Active Substance: ENALAPRIL
     Indication: Product used for unknown indication
     Dosage: ENALAPRIL TEVA-RATIOPHARM 60 TABLETS
     Route: 048
     Dates: start: 20180521

REACTIONS (5)
  - Lip oedema [Recovered/Resolved]
  - Dyspnoea [Recovered/Resolved]
  - Eyelid oedema [Recovered/Resolved]
  - Tongue oedema [Recovered/Resolved]
  - Pruritus [Recovered/Resolved]

NARRATIVE: CASE EVENT DATE: 20240325
